FAERS Safety Report 5035871-1 (Version None)
Quarter: 2006Q2

REPORT INFORMATION
  Report Type: 
  Country: None (occurrence: None)
  Receive Date: 20060526
  Receipt Date: 20060208
  Transmission Date: 20061013
  Serious: Yes (Hospitalization)
  Sender: FDA-Public Use
  Company Number: WAES 0602USA02307

PATIENT
  Sex: 0

DRUGS (2)
  1. VYTORIN [Suspect]
     Dosage: PO
     Route: 048
  2. TRICOR [Suspect]

REACTIONS (1)
  - BLOOD CREATINE PHOSPHOKINASE INCREASED [None]
